FAERS Safety Report 23021686 (Version 3)
Quarter: 2023Q4

REPORT INFORMATION
  Report Type: Spontaneous
  Country: ES (occurrence: ES)
  Receive Date: 20231003
  Receipt Date: 20231206
  Transmission Date: 20240109
  Serious: Yes (Hospitalization, Other)
  Sender: FDA-Public Use
  Company Number: ES-CELLTRION HEALTHCARE HUNGARY KFT-2023ES017999

PATIENT
  Age: 65 Year
  Sex: Female
  Weight: 64.5 kg

DRUGS (4)
  1. RITUXIMAB [Suspect]
     Active Substance: RITUXIMAB
     Indication: Follicular lymphoma
     Dosage: UNK
     Dates: start: 20221219
  2. RITUXIMAB [Suspect]
     Active Substance: RITUXIMAB
     Dosage: 375 MG/M2 (645MG) FOR 5 CYCLES
     Route: 042
     Dates: start: 20220829
  3. RITUXIMAB [Suspect]
     Active Substance: RITUXIMAB
     Dosage: 634 MG
     Route: 042
  4. LENALIDOMIDE [Suspect]
     Active Substance: LENALIDOMIDE
     Indication: Follicular lymphoma
     Dosage: 20 MG, 1X/DAY (DAY 1 TO 21, FOR 12 CYCLES)
     Route: 048
     Dates: start: 20220829, end: 20230526

REACTIONS (2)
  - Pneumonia [Recovered/Resolved]
  - C-reactive protein increased [Unknown]

NARRATIVE: CASE EVENT DATE: 20230525
